FAERS Safety Report 4501365-2 (Version None)
Quarter: 2004Q3

REPORT INFORMATION
  Report Type: 
  Country: None (occurrence: None)
  Receive Date: 20040928
  Receipt Date: 20040715
  Transmission Date: 20050211
  Serious: No
  Sender: FDA-Public Use
  Company Number: 04P-163-0267148-00

PATIENT
  Sex: Female
  Weight: 68.0396 kg

DRUGS (8)
  1. HUMIRA [Suspect]
     Indication: RHEUMATOID ARTHRITIS
     Dosage: 40 MG, 1 IN 2 WK, SUBCUTANEOUS
     Route: 058
     Dates: start: 20040609
  2. METHOTREXATE SODIUM [Concomitant]
  3. ATODOLAC [Concomitant]
  4. PROPACET 100 [Concomitant]
  5. ATENOLOL [Concomitant]
  6. FOLIC ACID [Concomitant]
  7. METHYLPREDNISOLONE [Concomitant]
  8. GLUCOSAMINE [Concomitant]

REACTIONS (1)
  - DRUG INEFFECTIVE [None]
